FAERS Safety Report 11185110 (Version 2)
Quarter: 2015Q3

REPORT INFORMATION
  Report Type: Spontaneous
  Country: FR (occurrence: FR)
  Receive Date: 20150612
  Receipt Date: 20150702
  Transmission Date: 20151125
  Serious: Yes (Hospitalization)
  Sender: FDA-Public Use
  Company Number: FR-PFIZER INC-2015195987

PATIENT
  Age: 67 Year
  Sex: Female

DRUGS (13)
  1. SERESTA [Concomitant]
     Active Substance: OXAZEPAM
     Dosage: 3 DF, DAILY
     Dates: start: 201308
  2. CORTANCYL [Concomitant]
     Active Substance: PREDNISONE
     Dosage: UNK
     Dates: start: 201308
  3. SERTRALINE [Concomitant]
     Active Substance: SERTRALINE HYDROCHLORIDE
     Dosage: 1.5 DF, DAILY
     Dates: start: 201308
  4. COTAREG [Concomitant]
     Active Substance: HYDROCHLOROTHIAZIDE\VALSARTAN
     Dosage: 1 DF, DAILY
     Dates: start: 201308
  5. LEVETIRACETAM. [Concomitant]
     Active Substance: LEVETIRACETAM
     Dosage: 2.5 DF, DAILY
     Dates: start: 201409
  6. SOLU-MEDROL [Suspect]
     Active Substance: METHYLPREDNISOLONE SODIUM SUCCINATE
     Dosage: 60 MG, CYCLIC
     Route: 042
     Dates: start: 20150318, end: 20150318
  7. ZOPHREN [Suspect]
     Active Substance: ONDANSETRON
     Dosage: 8 MG, 2X/DAY,CYCLIC
     Dates: start: 20150318, end: 20150318
  8. ACIDE FOLIQUE [Concomitant]
     Active Substance: FOLIC ACID
     Dosage: 1 DF, DAILY
     Dates: start: 201308
  9. DESLORATADINE. [Concomitant]
     Active Substance: DESLORATADINE
     Dosage: 1 DF, DAILY
     Dates: start: 201403
  10. ZOPHREN [Suspect]
     Active Substance: ONDANSETRON
     Dosage: 8MG, 2X/DAY,CYCLIC
     Dates: start: 201308
  11. ALIMTA [Suspect]
     Active Substance: PEMETREXED DISODIUM
     Indication: BRONCHIAL CARCINOMA
     Dosage: 500 MG/M2, CYCLIC
     Route: 041
     Dates: start: 201307
  12. ALIMTA [Suspect]
     Active Substance: PEMETREXED DISODIUM
     Dosage: 325 MG, CYCLIC
     Route: 041
     Dates: start: 20150318, end: 20150318
  13. TEMERIT [Concomitant]
     Active Substance: NEBIVOLOL
     Dosage: UNK
     Dates: start: 201308

REACTIONS (1)
  - Arteriospasm coronary [Recovered/Resolved]

NARRATIVE: CASE EVENT DATE: 20150318
